FAERS Safety Report 24535367 (Version 4)
Quarter: 2024Q4

REPORT INFORMATION
  Report Type: Spontaneous
  Country: FR (occurrence: FR)
  Receive Date: 20241022
  Receipt Date: 20241127
  Transmission Date: 20250115
  Serious: No
  Sender: UCB
  Company Number: FR-UCBSA-2024054146

PATIENT
  Age: 56 Year
  Sex: Male

DRUGS (4)
  1. NEUPRO [Suspect]
     Active Substance: ROTIGOTINE
     Indication: Parkinson^s disease
     Dosage: 8 MILLIGRAM, ONCE DAILY (QD)
     Dates: start: 2017
  2. NEUPRO [Suspect]
     Active Substance: ROTIGOTINE
     Dosage: 8 MILLIGRAM, ONCE DAILY (QD)
  3. ARTEMETHER [Concomitant]
     Active Substance: ARTEMETHER
     Indication: Parkinson^s disease
     Dosage: UNK (2 MG) (2 TABS MORNING, 2 TABS NOON, 1 TAB EVENING)
     Dates: start: 2013
  4. ARTEMETHER [Concomitant]
     Active Substance: ARTEMETHER
     Dosage: 1 MILLIGRAM (1 TABLET EVENING)
     Dates: start: 2013

REACTIONS (2)
  - Drug ineffective [Unknown]
  - Product adhesion issue [Unknown]

NARRATIVE: CASE EVENT DATE: 20240921
